FAERS Safety Report 18489289 (Version 2)
Quarter: 2021Q3

REPORT INFORMATION
  Report Type: Spontaneous
  Country: JP (occurrence: JP)
  Receive Date: 20201111
  Receipt Date: 20210701
  Transmission Date: 20211014
  Serious: Yes (Other)
  Sender: FDA-Public Use
  Company Number: JP-AUROBINDO-AUR-APL-2019-048884

PATIENT
  Age: 39 Year
  Sex: Female

DRUGS (4)
  1. FOLOTYN [Suspect]
     Active Substance: PRALATREXATE
     Dosage: 20 MILLIGRAM/SQ. METER, DAILY
     Route: 042
  2. FOLOTYN [Suspect]
     Active Substance: PRALATREXATE
     Indication: PERIPHERAL T-CELL LYMPHOMA UNSPECIFIED
     Dosage: UNK
     Route: 042
  3. FOLOTYN [Suspect]
     Active Substance: PRALATREXATE
     Dosage: 30 MILLIGRAM/SQ. METER, DAILY
     Route: 042
  4. MUNDESINE [Suspect]
     Active Substance: FORODESINE HYDROCHLORIDE
     Indication: PERIPHERAL T-CELL LYMPHOMA UNSPECIFIED
     Dosage: 600 MILLIGRAM, DAILY
     Route: 048

REACTIONS (9)
  - Stomatitis [Unknown]
  - Platelet count decreased [Unknown]
  - Malignant neoplasm progression [Unknown]
  - Hepatic function abnormal [Unknown]
  - Oral disorder [Unknown]
  - Lymphopenia [Unknown]
  - Anaemia [Unknown]
  - Acute myeloid leukaemia [Recovering/Resolving]
  - Neutrophil count decreased [Unknown]
